FAERS Safety Report 5056115-0 (Version None)
Quarter: 2006Q3

REPORT INFORMATION
  Report Type: 
  Country: None (occurrence: None)
  Receive Date: 20060720
  Receipt Date: 20050509
  Transmission Date: 20061208
  Serious: Yes (Other)
  Sender: FDA-Public Use
  Company Number: US-GLAXOSMITHKLINE-A0558615A

PATIENT
  Age: 40 Year
  Sex: Female
  Weight: 60.5 kg

DRUGS (7)
  1. PAXIL [Suspect]
     Indication: ANXIETY
     Dosage: 20MG PER DAY
     Route: 048
     Dates: start: 19991221, end: 20050101
  2. PAXIL CR [Suspect]
     Indication: ANXIETY
     Route: 048
  3. LEXAPRO [Suspect]
     Indication: ANXIETY
     Dosage: 10MG PER DAY
     Route: 048
  4. CELEXA [Suspect]
     Indication: ANXIETY
     Dosage: 20MG PER DAY
     Route: 048
  5. HYOSCYAMINE [Concomitant]
  6. CLONAZEPAM [Concomitant]
     Dates: end: 20050501
  7. VALIUM [Concomitant]
     Dates: start: 20050501

REACTIONS (9)
  - ABDOMINAL PAIN UPPER [None]
  - AGGRESSION [None]
  - DISTURBANCE IN ATTENTION [None]
  - DIZZINESS [None]
  - DRUG WITHDRAWAL SYNDROME [None]
  - FATIGUE [None]
  - HEADACHE [None]
  - NAUSEA [None]
  - VERTIGO [None]
